FAERS Safety Report 15727503 (Version 1)
Quarter: 2018Q4

REPORT INFORMATION
  Report Type: Spontaneous
  Country: US (occurrence: US)
  Receive Date: 20181217
  Receipt Date: 20181217
  Transmission Date: 20190205
  Serious: No
  Sender: FDA-Public Use
  Company Number: US-TEVA-823611ACC

PATIENT
  Sex: Female

DRUGS (3)
  1. BUPROPION HYDROCHLORIDE. [Suspect]
     Active Substance: BUPROPION HYDROCHLORIDE
     Indication: SMOKING CESSATION THERAPY
     Dates: start: 20170911
  2. POTASSIUM [Concomitant]
     Active Substance: POTASSIUM
     Route: 065
  3. LOW DOSE ASPIRING [Concomitant]

REACTIONS (3)
  - Alopecia [Unknown]
  - Dyspnoea [Unknown]
  - Agitation [Unknown]

NARRATIVE: CASE EVENT DATE: 201710
